FAERS Safety Report 23190089 (Version 1)
Quarter: 2023Q4

REPORT INFORMATION
  Report Type: Report from Study
  Country: EG (occurrence: EG)
  Receive Date: 20231116
  Receipt Date: 20231116
  Transmission Date: 20240110
  Serious: Yes (Death, Other)
  Sender: FDA-Public Use
  Company Number: EG-002147023-NVSC2023EG243465

PATIENT
  Sex: Female

DRUGS (3)
  1. ENTRESTO [Suspect]
     Active Substance: SACUBITRIL\VALSARTAN
     Indication: Cardiac failure
     Dosage: 50 MG, QD, (ONE TABLET ONCE DAILY)
     Route: 048
  2. ENTRESTO [Suspect]
     Active Substance: SACUBITRIL\VALSARTAN
     Dosage: 200 MG, QD, (ONE TABLET ONCE DAILY)
     Route: 048
  3. ENTRESTO [Suspect]
     Active Substance: SACUBITRIL\VALSARTAN
     Dosage: 50 MG, QD, (ONE TABLET ONCE DAILY)
     Route: 048

REACTIONS (4)
  - Neoplasm malignant [Fatal]
  - Wrong technique in product usage process [Unknown]
  - Inappropriate schedule of product administration [Unknown]
  - Underdose [Unknown]
